FAERS Safety Report 8829235 (Version 1)
Quarter: 2012Q4

REPORT INFORMATION
  Report Type: 
  Country: DK (occurrence: DK)
  Receive Date: 20121009
  Receipt Date: 20121009
  Transmission Date: 20130627
  Serious: Yes (Congenital Anomaly)
  Sender: FDA-Public Use
  Company Number: PHHY2012DK087428

PATIENT

DRUGS (3)
  1. LEVETIRACETAM [Suspect]
     Route: 064
  2. LAMOTRIGINE [Suspect]
     Route: 064
  3. VALPROIC ACID [Suspect]
     Route: 064

REACTIONS (2)
  - Craniosynostosis [Unknown]
  - Foetal exposure during pregnancy [Unknown]
